FAERS Safety Report 19376299 (Version 1)
Quarter: 2021Q2

REPORT INFORMATION
  Report Type: Report from Study
  Country: JP (occurrence: JP)
  Receive Date: 20210604
  Receipt Date: 20210604
  Transmission Date: 20210717
  Serious: Yes (Other)
  Sender: FDA-Public Use
  Company Number: JP-TAKEDA-2021TUS035184

PATIENT
  Age: 11 Year
  Sex: Male

DRUGS (4)
  1. LAMICTAL [Concomitant]
     Active Substance: LAMOTRIGINE
     Dosage: 20 MILLIGRAM, QD
  2. 503 (GUANFACINE HYDROCHLORIDE) [Suspect]
     Active Substance: GUANFACINE HYDROCHLORIDE
     Indication: ATTENTION DEFICIT HYPERACTIVITY DISORDER
     Dosage: 1 MILLIGRAM, QD
     Route: 048
     Dates: start: 20180420, end: 20180626
  3. 503 (GUANFACINE HYDROCHLORIDE) [Suspect]
     Active Substance: GUANFACINE HYDROCHLORIDE
     Dosage: 2 MILLIGRAM, QD
     Route: 048
     Dates: start: 20180627, end: 20190527
  4. 503 (GUANFACINE HYDROCHLORIDE) [Suspect]
     Active Substance: GUANFACINE HYDROCHLORIDE
     Dosage: 3 MILLIGRAM, QD
     Route: 048
     Dates: start: 20190528

REACTIONS (1)
  - Autism spectrum disorder [Recovering/Resolving]

NARRATIVE: CASE EVENT DATE: 20190528
